FAERS Safety Report 12654145 (Version 1)
Quarter: 2016Q3

REPORT INFORMATION
  Report Type: Spontaneous
  Country: US (occurrence: None)
  Receive Date: 20160815
  Receipt Date: 20160815
  Transmission Date: 20161109
  Serious: Yes (Other)
  Sender: FDA-Public Use
  Company Number: None

PATIENT
  Age: 63 Year
  Sex: Male
  Weight: 72.58 kg

DRUGS (12)
  1. MULTIVITAMIN [Concomitant]
     Active Substance: VITAMINS
  2. TANZEUM [Suspect]
     Active Substance: ALBIGLUTIDE
     Indication: DIABETES MELLITUS INADEQUATE CONTROL
     Dosage: 4 INJECTION WEEKLY
     Route: 058
     Dates: start: 20160803, end: 20160812
  3. TANZEUM [Suspect]
     Active Substance: ALBIGLUTIDE
     Indication: TYPE 2 DIABETES MELLITUS
     Dosage: 4 INJECTION WEEKLY
     Route: 058
     Dates: start: 20160803, end: 20160812
  4. ASPIRIN. [Concomitant]
     Active Substance: ASPIRIN
  5. SAW PALMETTO [Concomitant]
     Active Substance: SAW PALMETTO
  6. LANTUS [Concomitant]
     Active Substance: INSULIN GLARGINE
  7. VITAMIN C [Concomitant]
     Active Substance: ASCORBIC ACID
  8. FISH OIL [Concomitant]
     Active Substance: FISH OIL
  9. LOSARTAN. [Concomitant]
     Active Substance: LOSARTAN
  10. VITAMIN E [Concomitant]
     Active Substance: .ALPHA.-TOCOPHEROL
  11. AMLODOPINE [Concomitant]
     Active Substance: AMLODIPINE BESYLATE
  12. CO-Q10 [Concomitant]

REACTIONS (6)
  - Nausea [None]
  - Dehydration [None]
  - Diarrhoea [None]
  - Blood electrolytes decreased [None]
  - Constipation [None]
  - Migraine [None]

NARRATIVE: CASE EVENT DATE: 20160806
